FAERS Safety Report 7064678-9 (Version None)
Quarter: 2010Q4

REPORT INFORMATION
  Report Type: 
  Country: None (occurrence: None)
  Receive Date: 20101022
  Receipt Date: 20101022
  Transmission Date: 20110411
  Serious: Yes (Other)
  Sender: FDA-Public Use
  Company Number: None

PATIENT
  Sex: Male
  Weight: 113.6 kg

DRUGS (1)
  1. OXYCONTIN [Suspect]
     Dosage: 20MG BID 047
     Route: 048
     Dates: start: 20100913

REACTIONS (3)
  - DEHYDRATION [None]
  - DIARRHOEA [None]
  - PRODUCT FORMULATION ISSUE [None]
